FAERS Safety Report 14775520 (Version 2)
Quarter: 2018Q2

REPORT INFORMATION
  Report Type: Spontaneous
  Country: US (occurrence: US)
  Receive Date: 20180418
  Receipt Date: 20180423
  Transmission Date: 20180711
  Serious: Yes (Other)
  Sender: FDA-Public Use
  Company Number: US-PFIZER INC-2018152204

PATIENT
  Age: 39 Year
  Sex: Female

DRUGS (4)
  1. GEMCITABINE HYDROCHLORIDE. [Suspect]
     Active Substance: GEMCITABINE HYDROCHLORIDE
     Indication: BREAST CANCER METASTATIC
     Dosage: 1000 MG/M2, CYCLIC, DAYS 1 AND 8, 21-DAY CYCLE
     Dates: start: 20121202, end: 20130306
  2. HERCEPTIN [Concomitant]
     Active Substance: TRASTUZUMAB
     Dosage: UNK
     Dates: start: 20130319
  3. GEMCITABINE HYDROCHLORIDE. [Suspect]
     Active Substance: GEMCITABINE HYDROCHLORIDE
     Dosage: 20% GEMCITABINE DOSE REDUCTION
     Dates: start: 20130319, end: 20130326
  4. HERCEPTIN [Concomitant]
     Active Substance: TRASTUZUMAB
     Indication: BREAST CANCER METASTATIC
     Dosage: 342 MG/M2, CYCLIC, EVERY 3 WEEKS IN A 21-DAY CYCLE
     Dates: start: 20121202, end: 20130306

REACTIONS (2)
  - Myositis [Recovering/Resolving]
  - Recall phenomenon [Recovering/Resolving]

NARRATIVE: CASE EVENT DATE: 20130118
